FAERS Safety Report 8689565 (Version 3)
Quarter: 2013Q3

REPORT INFORMATION
  Report Type: Spontaneous
  Country: US (occurrence: US)
  Receive Date: 20120727
  Receipt Date: 20130912
  Transmission Date: 20140515
  Serious: No
  Sender: FDA-Public Use
  Company Number: US-ASTRAZENECA-2012SE00461

PATIENT
  Age: 55 Year
  Sex: Female
  Weight: 77.1 kg

DRUGS (7)
  1. SEROQUEL [Suspect]
     Indication: BIPOLAR DISORDER
     Route: 048
  2. SEROQUEL [Suspect]
     Indication: BIPOLAR DISORDER
     Route: 048
     Dates: start: 201307
  3. PROZAC [Concomitant]
     Indication: BIPOLAR DISORDER
     Route: 048
  4. DOXEPIN [Concomitant]
  5. LITHIUM [Concomitant]
     Indication: BIPOLAR DISORDER
     Route: 048
  6. REMERON [Concomitant]
     Indication: DEPRESSION
     Route: 048
  7. XANAX [Concomitant]
     Indication: ANXIETY
     Route: 048

REACTIONS (12)
  - Insomnia [Unknown]
  - Psychotic disorder [Unknown]
  - Malaise [Unknown]
  - Depression [Unknown]
  - Insomnia [Unknown]
  - Poor quality sleep [Unknown]
  - Somnolence [Unknown]
  - Sluggishness [Unknown]
  - Lethargy [Unknown]
  - Drug withdrawal syndrome [Unknown]
  - Drug dose omission [Unknown]
  - Intentional drug misuse [Unknown]
